FAERS Safety Report 13887946 (Version 1)
Quarter: 2017Q3

REPORT INFORMATION
  Report Type: Spontaneous
  Country: BR (occurrence: BR)
  Receive Date: 20170821
  Receipt Date: 20170821
  Transmission Date: 20171127
  Serious: Yes (Hospitalization, Other)
  Sender: FDA-Public Use
  Company Number: BR-SA-2017SA127463

PATIENT
  Age: 78 Year
  Sex: Female
  Weight: 130 kg

DRUGS (14)
  1. SELOZOK [Concomitant]
     Active Substance: METOPROLOL SUCCINATE
     Dosage: 50 MG
     Route: 048
     Dates: start: 20170503, end: 20170522
  2. LASIX [Concomitant]
     Active Substance: FUROSEMIDE
     Route: 042
     Dates: start: 20170503, end: 20170628
  3. TAZOBACTAM/PIPERACILLIN [Concomitant]
     Route: 042
     Dates: start: 20170503, end: 20170518
  4. PANTOZOL [Concomitant]
     Active Substance: PANTOPRAZOLE SODIUM
     Dosage: 40 MG
     Route: 042
     Dates: start: 20170503, end: 20170611
  5. LYRICA [Concomitant]
     Active Substance: PREGABALIN
     Dosage: 75 MG
     Route: 065
  6. LYRICA [Concomitant]
     Active Substance: PREGABALIN
     Dosage: 75 MG
     Route: 065
  7. LUFTAL [Concomitant]
     Active Substance: DIMETHICONE
     Route: 048
     Dates: start: 20170507, end: 20170628
  8. ALDACTONE [Concomitant]
     Active Substance: SPIRONOLACTONE
     Dosage: 25 MG
     Route: 048
     Dates: start: 20170503, end: 20170628
  9. FLUIMUCIL [Concomitant]
     Active Substance: ACETYLCYSTEINE
     Dosage: 1 ENVELOP ONCE A DAY
     Route: 048
     Dates: start: 20170504, end: 20170619
  10. CLEXANE SAFETY LOCK [Suspect]
     Active Substance: ENOXAPARIN SODIUM
     Indication: PROPHYLAXIS
     Route: 058
     Dates: start: 20170507, end: 20170515
  11. ANCORON [Concomitant]
     Active Substance: AMIODARONE HYDROCHLORIDE
     Dosage: 200 MG
     Route: 048
     Dates: start: 20170503, end: 20170628
  12. LIPITOR [Concomitant]
     Active Substance: ATORVASTATIN CALCIUM
     Route: 048
     Dates: start: 20170504, end: 20170628
  13. GALVUS [Concomitant]
     Active Substance: VILDAGLIPTIN
     Dosage: 50 MG
     Route: 048
     Dates: start: 20170503, end: 20170628
  14. CORTISONAL [Concomitant]
     Dosage: 100 MG
     Route: 042
     Dates: start: 20170505, end: 20170529

REACTIONS (3)
  - Muscle haemorrhage [Recovered/Resolved]
  - Cardiac failure congestive [Unknown]
  - Pain [Unknown]

NARRATIVE: CASE EVENT DATE: 20170513
